FAERS Safety Report 15631645 (Version 2)
Quarter: 2019Q1

REPORT INFORMATION
  Report Type: Spontaneous
  Country: CA (occurrence: CA)
  Receive Date: 20181119
  Receipt Date: 20190125
  Transmission Date: 20190417
  Serious: Yes (Other)
  Sender: FDA-Public Use
  Company Number: CA-TEVA-2018-CA-978038

PATIENT
  Age: 14 Year
  Sex: Male

DRUGS (15)
  1. METFORMIN [Suspect]
     Active Substance: METFORMIN HYDROCHLORIDE
     Route: 065
  2. ENALAPRIL MALEATE. [Suspect]
     Active Substance: ENALAPRIL MALEATE
     Route: 065
  3. INFLIXIMAB [Suspect]
     Active Substance: INFLIXIMAB
     Indication: POLYARTERITIS NODOSA
     Route: 065
  4. METHOTREXATE. [Suspect]
     Active Substance: METHOTREXATE
     Indication: POLYARTERITIS NODOSA
     Route: 065
  5. AMLODIPINE [Suspect]
     Active Substance: AMLODIPINE BESYLATE
     Route: 065
  6. INSULIN (HUMAN) [Suspect]
     Active Substance: INSULIN HUMAN
     Route: 065
  7. AZATHIOPRINE. [Suspect]
     Active Substance: AZATHIOPRINE
     Indication: POLYARTERITIS NODOSA
     Route: 065
  8. PREDNISONE. [Suspect]
     Active Substance: PREDNISONE
     Route: 065
  9. FERROUS FUMARATE [Suspect]
     Active Substance: FERROUS FUMARATE
     Route: 065
  10. SULFAMETHOXAZOLE [Suspect]
     Active Substance: SULFAMETHOXAZOLE
     Route: 065
  11. TESTOSTERONE. [Suspect]
     Active Substance: TESTOSTERONE
     Route: 065
  12. CYCLOPHOSPHAMIDE. [Suspect]
     Active Substance: CYCLOPHOSPHAMIDE
     Indication: POLYARTERITIS NODOSA
     Route: 065
  13. NUTROPIN [Suspect]
     Active Substance: SOMATROPIN
     Route: 065
  14. RANITIDINE. [Suspect]
     Active Substance: RANITIDINE
     Route: 065
  15. PROTROPIN [Suspect]
     Active Substance: SOMATREM
     Route: 065

REACTIONS (5)
  - Lymphoproliferative disorder [Unknown]
  - Clear cell renal cell carcinoma [Unknown]
  - Renal cell carcinoma [Unknown]
  - Off label use [Unknown]
  - Product use in unapproved indication [Unknown]
